FAERS Safety Report 18744748 (Version 1)
Quarter: 2021Q1

REPORT INFORMATION
  Report Type: Spontaneous
  Country: JP (occurrence: JP)
  Receive Date: 20210115
  Receipt Date: 20210115
  Transmission Date: 20210419
  Serious: Yes (Other)
  Sender: FDA-Public Use
  Company Number: JP-SCIEGEN-2021SCILIT00008

PATIENT
  Age: 46 Year
  Sex: Male

DRUGS (3)
  1. PREDNISOLONE. [Interacting]
     Active Substance: PREDNISOLONE
     Route: 065
  2. ATORVASTATIN CALCIUM. [Suspect]
     Active Substance: ATORVASTATIN CALCIUM
     Indication: HYPERCHOLESTEROLAEMIA
     Route: 065
  3. PREDNISOLONE. [Interacting]
     Active Substance: PREDNISOLONE
     Indication: AUTOIMMUNE HEPATITIS
     Route: 065

REACTIONS (1)
  - Autoimmune hepatitis [Recovered/Resolved]
